FAERS Safety Report 5164746-2 (Version None)
Quarter: 2006Q4

REPORT INFORMATION
  Report Type: 
  Country: None (occurrence: None)
  Receive Date: 20061205
  Receipt Date: 20021205
  Transmission Date: 20070319
  Serious: Yes (Hospitalization)
  Sender: FDA-Public Use
  Company Number: FR-GLAXOSMITHKLINE-B0287585A

PATIENT
  Sex: Female

DRUGS (5)
  1. RETROVIR [Suspect]
     Indication: ANTIVIRAL PROPHYLAXIS
     Route: 048
     Dates: start: 20020807
  2. COMBIVIR [Suspect]
     Indication: HIV INFECTION
     Dates: start: 20020429, end: 20020806
  3. RETROVIR [Concomitant]
     Dosage: 1.5MG FOUR TIMES PER DAY
     Route: 042
     Dates: start: 20020807, end: 20020809
  4. VIRACEPT [Concomitant]
     Indication: HIV INFECTION
     Dates: start: 20020429, end: 20020806
  5. VIRAMUNE [Concomitant]
     Indication: ANTIVIRAL PROPHYLAXIS
     Dates: start: 20020806, end: 20020806

REACTIONS (15)
  - ACIDOSIS [None]
  - ANAEMIA [None]
  - ANAEMIA NEONATAL [None]
  - CAESAREAN SECTION [None]
  - DRUG EXPOSURE DURING PREGNANCY [None]
  - FEEDING DISORDER NEONATAL [None]
  - GASTROINTESTINAL DISORDER [None]
  - HYPERKALAEMIA [None]
  - HYPOGLYCAEMIA [None]
  - HYPOGLYCAEMIA NEONATAL [None]
  - MACROCYTOSIS [None]
  - NEUTROPENIA [None]
  - NEUTROPENIA NEONATAL [None]
  - OVERDOSE [None]
  - TRANSAMINASES INCREASED [None]
